FAERS Safety Report 4367536-3 (Version None)
Quarter: 2004Q2

REPORT INFORMATION
  Report Type: 
  Country: None (occurrence: None)
  Receive Date: 20040601
  Receipt Date: 20040202
  Transmission Date: 20050107
  Serious: Yes (Hospitalization)
  Sender: FDA-Public Use
  Company Number: IE-MERCK-0402GBR00047

PATIENT
  Sex: Female

DRUGS (2)
  1. COGENTIN [Suspect]
     Indication: PARKINSON'S DISEASE
     Route: 065
  2. CARBIDOPA AND LEVODOPA [Concomitant]
     Indication: PARKINSON'S DISEASE
     Route: 048

REACTIONS (2)
  - AMNESIA [None]
  - COGNITIVE DISORDER [None]
